FAERS Safety Report 4715875-6 (Version None)
Quarter: 2005Q3

REPORT INFORMATION
  Report Type: 
  Country: None (occurrence: None)
  Receive Date: 20050718
  Receipt Date: 20050707
  Transmission Date: 20060218
  Serious: Yes (Hospitalization)
  Sender: FDA-Public Use
  Company Number: IT-ROCHE-409880

PATIENT
  Age: 64 Year
  Sex: Male

DRUGS (3)
  1. MYCOPHENOLATE MOFETIL [Suspect]
     Indication: RENAL TRANSPLANT
     Route: 048
     Dates: start: 20040828
  2. FK506 [Suspect]
     Indication: RENAL TRANSPLANT
     Route: 048
     Dates: start: 20040828
  3. FK506 [Suspect]
     Route: 048

REACTIONS (1)
  - NEPHROPATHY TOXIC [None]
